FAERS Safety Report 12428106 (Version 2)
Quarter: 2016Q3

REPORT INFORMATION
  Report Type: Spontaneous
  Country: AT (occurrence: AT)
  Receive Date: 20160602
  Receipt Date: 20160711
  Transmission Date: 20161109
  Serious: Yes (Other)
  Sender: FDA-Public Use
  Company Number: AT-ROCHE-1767533

PATIENT
  Age: 55 Year
  Sex: Male
  Weight: 103 kg

DRUGS (2)
  1. XOLAIR [Suspect]
     Active Substance: OMALIZUMAB
     Indication: MASTOCYTOSIS
     Dosage: UNK
     Route: 065
  2. XOLAIR [Suspect]
     Active Substance: OMALIZUMAB
     Indication: MASTOCYTOSIS
     Dosage: 1200 MG (2* 600 MG) PER MONTH
     Route: 058
     Dates: start: 20120425, end: 20130201

REACTIONS (7)
  - Blood immunoglobulin E increased [Unknown]
  - Off label use [Unknown]
  - Paraesthesia [Recovered/Resolved]
  - Accessory nerve disorder [Recovered/Resolved]
  - Allergy to arthropod sting [Unknown]
  - Mastocytosis [Unknown]
  - Anaphylactic reaction [Unknown]

NARRATIVE: CASE EVENT DATE: 20130629
